FAERS Safety Report 10333350 (Version 1)
Quarter: 2014Q3

REPORT INFORMATION
  Report Type: Spontaneous
  Country: US (occurrence: US)
  Receive Date: 20140722
  Receipt Date: 20140722
  Transmission Date: 20150326
  Serious: Yes (Congenital Anomaly)
  Sender: FDA-Public Use
  Company Number: US-FRI-1000069144

PATIENT
  Age: 0 Day
  Sex: Female

DRUGS (1)
  1. LEXAPRO [Suspect]
     Active Substance: ESCITALOPRAM OXALATE
     Route: 064
     Dates: end: 20110712

REACTIONS (2)
  - Multiple cardiac defects [Unknown]
  - Truncus arteriosus persistent [Unknown]

NARRATIVE: CASE EVENT DATE: 20110712
